FAERS Safety Report 7598731-8 (Version None)
Quarter: 2011Q3

REPORT INFORMATION
  Report Type: 
  Country: None (occurrence: None)
  Receive Date: 20110711
  Receipt Date: 20110628
  Transmission Date: 20111222
  Serious: No
  Sender: FDA-Public Use
  Company Number: US-BIOGENIDEC-2010BI007045

PATIENT
  Sex: Female

DRUGS (1)
  1. TYSABRI [Suspect]
     Indication: MULTIPLE SCLEROSIS
     Route: 042
     Dates: start: 20070111

REACTIONS (14)
  - MUSCLE SPASTICITY [None]
  - MULTIPLE SCLEROSIS [None]
  - PAIN IN EXTREMITY [None]
  - VIRAL INFECTION [None]
  - STRESS [None]
  - GAIT DISTURBANCE [None]
  - HYPOTENSION [None]
  - ASTHENIA [None]
  - BALANCE DISORDER [None]
  - ONYCHOCLASIS [None]
  - DRUG INEFFECTIVE [None]
  - FATIGUE [None]
  - NAUSEA [None]
  - MUSCULAR WEAKNESS [None]
